FAERS Safety Report 5677666-1 (Version None)
Quarter: 2008Q1

REPORT INFORMATION
  Report Type: 
  Country: None (occurrence: None)
  Receive Date: 20080324
  Receipt Date: 20070525
  Transmission Date: 20080703
  Serious: Yes (Hospitalization)
  Sender: FDA-Public Use
  Company Number: US-ABBOTT-07P-163-0369703-00

PATIENT
  Sex: Female
  Weight: 10.41 kg

DRUGS (6)
  1. DEPAKENE [Suspect]
     Indication: CONVULSION
     Route: 048
     Dates: end: 20070523
  2. DEPAKOTE [Suspect]
     Indication: CONVULSION
     Route: 050
     Dates: start: 20070523
  3. RCF CONCENTRATION [Concomitant]
     Indication: NUTRITIONAL SUPPORT
     Dates: start: 20070523
  4. CARTHAMUS TINCTORIUS OIL [Concomitant]
     Indication: NUTRITIONAL SUPPORT
     Dates: start: 20070523
  5. H2O [Concomitant]
     Indication: DRUG USE FOR UNKNOWN INDICATION
     Dates: start: 20070523
  6. CYAMOPSIS TETRAGONOLOBA GUM [Concomitant]
     Indication: NUTRITIONAL SUPPORT
     Dates: start: 20070523

REACTIONS (3)
  - CONVULSION [None]
  - FEEDING TUBE COMPLICATION [None]
  - MEDICATION RESIDUE [None]
